FAERS Safety Report 14249739 (Version 2)
Quarter: 2017Q4

REPORT INFORMATION
  Report Type: Report from Study
  Country: None (occurrence: US)
  Receive Date: 20171205
  Receipt Date: 20171218
  Transmission Date: 20180321
  Serious: Yes (Other)
  Sender: FDA-Public Use
  Company Number: US-ABBVIE-17K-163-2182677-00

PATIENT
  Age: 74 Year
  Sex: Male

DRUGS (6)
  1. AMLODIPINE [Concomitant]
     Active Substance: AMLODIPINE BESYLATE
     Indication: HYPERTENSION
  2. HUMIRA [Suspect]
     Active Substance: ADALIMUMAB
     Indication: COLITIS ULCERATIVE
  3. DUTASTERIDE. [Concomitant]
     Active Substance: DUTASTERIDE
     Indication: PROSTATOMEGALY
  4. AMLODIPINE [Concomitant]
     Active Substance: AMLODIPINE BESYLATE
     Indication: HYPERTENSION
  5. HUMIRA [Suspect]
     Active Substance: ADALIMUMAB
     Indication: CROHN^S DISEASE
     Route: 058
     Dates: start: 2015
  6. DUTASTERIDE. [Concomitant]
     Active Substance: DUTASTERIDE
     Indication: HYPERTENSION

REACTIONS (1)
  - Intestinal polyp [Recovered/Resolved]

NARRATIVE: CASE EVENT DATE: 201709
